FAERS Safety Report 24883887 (Version 1)
Quarter: 2025Q1

REPORT INFORMATION
  Report Type: Spontaneous
  Country: US (occurrence: US)
  Receive Date: 20250124
  Receipt Date: 20250124
  Transmission Date: 20250409
  Serious: Yes (Hospitalization, Other)
  Sender: LEADING PHARMA
  Company Number: US-LEADINGPHARMA-US-2025LEASPO00022

PATIENT
  Sex: Female

DRUGS (5)
  1. FOLIC ACID [Suspect]
     Active Substance: FOLIC ACID
     Indication: Chemotherapy
     Route: 065
  2. HYDROXYCHLOROQUINE DIPHOSPHATE [Suspect]
     Active Substance: HYDROXYCHLOROQUINE DIPHOSPHATE
     Indication: Chemotherapy
     Route: 065
  3. BENLYSTA [Suspect]
     Active Substance: BELIMUMAB
     Indication: Chemotherapy
     Route: 065
  4. PREDNISONE [Suspect]
     Active Substance: PREDNISONE
     Indication: Chemotherapy
     Route: 065
  5. METHYLPREDNISOLONE [Suspect]
     Active Substance: METHYLPREDNISOLONE
     Indication: Chemotherapy
     Route: 065

REACTIONS (16)
  - Sepsis [Unknown]
  - Nephrolithiasis [Unknown]
  - Gastroenteritis viral [Unknown]
  - Ovarian cyst [Unknown]
  - Loss of consciousness [Unknown]
  - Seizure [Unknown]
  - Feeling abnormal [Unknown]
  - Mobility decreased [Unknown]
  - Quality of life decreased [Unknown]
  - Pyrexia [Unknown]
  - Bone pain [Unknown]
  - Tremor [Unknown]
  - Myoclonus [Unknown]
  - Butterfly rash [Unknown]
  - Wheelchair user [Unknown]
  - Product use in unapproved indication [Unknown]
